FAERS Safety Report 25683203 (Version 3)
Quarter: 2025Q3

REPORT INFORMATION
  Report Type: Report from Study
  Country: CN (occurrence: CN)
  Receive Date: 20250814
  Receipt Date: 20250826
  Transmission Date: 20251020
  Serious: Yes (Other)
  Sender: VERITY PHARMACEUTICALS INC.
  Company Number: CN-VER-202500028

PATIENT
  Sex: Female

DRUGS (2)
  1. TRIPTORELIN [Suspect]
     Active Substance: TRIPTORELIN
     Indication: In vitro fertilisation
     Route: 058
  2. TRIPTORELIN [Suspect]
     Active Substance: TRIPTORELIN
     Indication: In vitro fertilisation
     Route: 058

REACTIONS (6)
  - Off label use [Unknown]
  - Live birth [Unknown]
  - Abortion spontaneous [Unknown]
  - Ovarian hyperstimulation syndrome [Unknown]
  - Off label use [Unknown]
  - Off label use [Unknown]
